FAERS Safety Report 18952967 (Version 1)
Quarter: 2021Q1

REPORT INFORMATION
  Report Type: Spontaneous
  Country: CA (occurrence: CA)
  Receive Date: 20210301
  Receipt Date: 20210301
  Transmission Date: 20210420
  Serious: Yes (Other)
  Sender: FDA-Public Use
  Company Number: CA-JNJFOC-20210243858

PATIENT
  Age: 39 Year
  Sex: Male

DRUGS (2)
  1. INFLIXIMAB, RECOMBINANT [Suspect]
     Active Substance: INFLIXIMAB
     Indication: COLITIS ULCERATIVE
     Route: 042
  2. PREDNISONE. [Concomitant]
     Active Substance: PREDNISONE

REACTIONS (7)
  - Blood pressure diastolic decreased [Unknown]
  - Off label use [Unknown]
  - Body temperature fluctuation [Unknown]
  - Rash [Unknown]
  - Weight increased [Unknown]
  - Heart rate decreased [Unknown]
  - Dizziness [Unknown]
